FAERS Safety Report 24408479 (Version 1)
Quarter: 2024Q4

REPORT INFORMATION
  Report Type: Spontaneous
  Country: US (occurrence: US)
  Receive Date: 20241007
  Receipt Date: 20241007
  Transmission Date: 20250115
  Serious: No
  Sender: RECKITT BENCKISER
  Company Number: US-INDIVIOR US-INDV-143572-2024

PATIENT
  Age: 40 Year
  Sex: Male

DRUGS (5)
  1. SUBLOCADE [Suspect]
     Active Substance: BUPRENORPHINE
     Indication: Substance use disorder
     Dosage: 100 MILLIGRAM, QMO
     Route: 058
     Dates: start: 20231101
  2. SUBLOCADE [Suspect]
     Active Substance: BUPRENORPHINE
     Dosage: 100 MILLIGRAM, QMO
     Route: 058
     Dates: start: 20231129
  3. SUBLOCADE [Suspect]
     Active Substance: BUPRENORPHINE
     Dosage: 100 MILLIGRAM, QMO
     Route: 058
     Dates: start: 20231229
  4. SUBLOCADE [Suspect]
     Active Substance: BUPRENORPHINE
     Dosage: 100 MILLIGRAM, QMO
     Route: 058
     Dates: start: 20240126
  5. SUBLOCADE [Suspect]
     Active Substance: BUPRENORPHINE
     Dosage: 100 MILLIGRAM, QMO
     Route: 058
     Dates: start: 20240223

REACTIONS (2)
  - Inappropriate schedule of product administration [Recovered/Resolved]
  - Drug hypersensitivity [Recovered/Resolved]

NARRATIVE: CASE EVENT DATE: 20230220
